FAERS Safety Report 8812128 (Version 2)
Quarter: 2012Q4

REPORT INFORMATION
  Report Type: 
  Country: US (occurrence: US)
  Receive Date: 20120927
  Receipt Date: 20121102
  Transmission Date: 20130627
  Serious: Yes (Other)
  Sender: FDA-Public Use
  Company Number: US-ASTRAZENECA-2012SE72954

PATIENT
  Age: 61 Year
  Sex: Female

DRUGS (3)
  1. CRESTOR [Suspect]
     Route: 048
     Dates: start: 200802
  2. PRAVASTATIN [Suspect]
     Route: 065
  3. ZANTAC [Concomitant]

REACTIONS (5)
  - Cataract [Unknown]
  - Abdominal distension [Unknown]
  - Feeling abnormal [Unknown]
  - Blood cholesterol increased [Unknown]
  - Drug dose omission [Unknown]
